FAERS Safety Report 4972941-8 (Version None)
Quarter: 2006Q2

REPORT INFORMATION
  Report Type: 
  Country: None (occurrence: None)
  Receive Date: 20060407
  Receipt Date: 20060329
  Transmission Date: 20061013
  Serious: Yes (Death, Hospitalization)
  Sender: FDA-Public Use
  Company Number: HQWYE605131MAR06

PATIENT
  Age: 67 Year
  Sex: Male

DRUGS (4)
  1. GEMTUZUMAB OZOGAMICIN (GEMTUZUMAB OZOGAMICIN, INJECTION) [Suspect]
     Indication: ACUTE MYELOID LEUKAEMIA
     Dosage: 12 MG
     Dates: start: 20041013, end: 20041013
  2. CYTARABINE [Suspect]
     Indication: ACUTE MYELOID LEUKAEMIA
     Dosage: ^MICE INDUCTION^
     Dates: start: 20041021, end: 20041027
  3. ETOPOSIDE [Suspect]
     Indication: ACUTE MYELOID LEUKAEMIA
     Dosage: ^MICE INDUCTION^
     Dates: start: 20041021, end: 20041027
  4. NOVANTRON (MITOXANTRONE HYDROCHLORIDE, INJECTION) [Suspect]
     Indication: ACUTE MYELOID LEUKAEMIA
     Dosage: ^MICE INDUCTION^
     Dates: start: 20041021, end: 20041027

REACTIONS (2)
  - BRONCHOPULMONARY ASPERGILLOSIS [None]
  - SEPTIC SHOCK [None]
